FAERS Safety Report 8188240-X (Version None)
Quarter: 2012Q1

REPORT INFORMATION
  Report Type: 
  Country: None (occurrence: None)
  Receive Date: 20120306
  Receipt Date: 20120227
  Transmission Date: 20120608
  Serious: Yes (Hospitalization)
  Sender: FDA-Public Use
  Company Number: NL-AMGEN-NLDCT2011065557

PATIENT
  Age: 67 Year
  Sex: Female

DRUGS (5)
  1. FOSINOPRIL SODIUM [Concomitant]
     Dosage: 10 MG, QD
     Route: 048
     Dates: start: 20111221
  2. MESALAMINE [Concomitant]
     Dosage: 500 MG, QD
  3. XGEVA [Suspect]
     Indication: BREAST CANCER
     Dosage: UNK
     Dates: start: 20111129
  4. TRAMADOL HCL [Concomitant]
     Dosage: 50 MG, PRN
  5. METOCLOPRAMIDE [Concomitant]
     Dosage: 10 MG, QD

REACTIONS (2)
  - PNEUMONIA [None]
  - FEBRILE NEUTROPENIA [None]
